FAERS Safety Report 10024713 (Version 1)
Quarter: 2014Q1

REPORT INFORMATION
  Report Type: Spontaneous
  Country: US (occurrence: None)
  Receive Date: 20140207
  Receipt Date: 20140207
  Transmission Date: 20141002
  Serious: Yes (Death)
  Sender: FDA-Public Use
  Company Number: 2013SA082648

PATIENT
  Age: 49 Year
  Sex: Female

DRUGS (4)
  1. AMBIEN [Suspect]
  2. CYMBALTA [Concomitant]
  3. XANAX [Concomitant]
  4. NEURONTIN [Concomitant]

REACTIONS (1)
  - Middle insomnia [None]
